FAERS Safety Report 15139193 (Version 4)
Quarter: 2021Q2

REPORT INFORMATION
  Report Type: Spontaneous
  Country: PR (occurrence: PR)
  Receive Date: 20180713
  Receipt Date: 20210413
  Transmission Date: 20210716
  Serious: Yes (Hospitalization)
  Sender: FDA-Public Use
  Company Number: PR-PFIZER INC-2016432102

PATIENT
  Age: 50 Year
  Sex: Female
  Weight: 93.88 kg

DRUGS (10)
  1. METHOXSALEN. [Concomitant]
     Active Substance: METHOXSALEN
     Dosage: 10 MG, UNK
     Dates: start: 2016, end: 201706
  2. KLONOPIN [Concomitant]
     Active Substance: CLONAZEPAM
     Dosage: 1 UG
     Dates: start: 2013, end: 201710
  3. LYRICA [Suspect]
     Active Substance: PREGABALIN
     Dosage: 150 MG, 2X/DAY
     Route: 048
  4. ZANAFLEX [Concomitant]
     Active Substance: TIZANIDINE HYDROCHLORIDE
     Dosage: 4 MG, UNK
     Dates: start: 2017, end: 201811
  5. FOLIC ACID. [Concomitant]
     Active Substance: FOLIC ACID
     Dosage: 1 UG, DAILY
     Dates: start: 201712, end: 201812
  6. FLECTOR [Concomitant]
     Active Substance: DICLOFENAC EPOLAMINE
     Dosage: 1.3 %, AS NEEDED (1 Q 12 HOURS)
     Route: 061
     Dates: start: 2014, end: 201710
  7. LYRICA [Suspect]
     Active Substance: PREGABALIN
     Indication: FIBROMYALGIA
     Dosage: 150 MG, 2X/DAY
     Route: 048
     Dates: start: 2014, end: 2018
  8. METHOTREXATE. [Concomitant]
     Active Substance: METHOTREXATE
     Dosage: 6 DF, WEEKLY
     Dates: start: 2016, end: 201706
  9. LIORESAL [Concomitant]
     Active Substance: BACLOFEN
     Dosage: 10 UG, AS NEEDED
     Dates: start: 2016
  10. PAXIL [Concomitant]
     Active Substance: PAROXETINE HYDROCHLORIDE
     Dosage: 20 UG
     Dates: start: 2013, end: 201710

REACTIONS (3)
  - Gait disturbance [Unknown]
  - Pain [Unknown]
  - Impaired driving ability [Unknown]
